FAERS Safety Report 6728039-1 (Version None)
Quarter: 2010Q2

REPORT INFORMATION
  Report Type: 
  Country: None (occurrence: None)
  Receive Date: 20100517
  Receipt Date: 20100506
  Transmission Date: 20101027
  Serious: Yes (Hospitalization)
  Sender: FDA-Public Use
  Company Number: SE-JNJFOC-20100505266

PATIENT
  Age: 40 Year
  Sex: Female

DRUGS (4)
  1. REMICADE [Suspect]
     Indication: ANKYLOSING SPONDYLITIS
     Dosage: DOSE ^100MG2^; 2ND DOSE
     Route: 042
  2. REMICADE [Suspect]
     Dosage: DOSE ^100MG2^; 1ST DOSE
     Route: 042
  3. ACETAMINOPHEN [Concomitant]
  4. IPREN [Concomitant]

REACTIONS (3)
  - MULTIPLE SCLEROSIS [None]
  - MYOPATHY [None]
  - SERUM SICKNESS [None]
